FAERS Safety Report 16132831 (Version 2)
Quarter: 2019Q3

REPORT INFORMATION
  Report Type: Spontaneous
  Country: US (occurrence: US)
  Receive Date: 20190329
  Receipt Date: 20190918
  Transmission Date: 20191004
  Serious: No
  Sender: FDA-Public Use
  Company Number: US-PFIZER INC-2019129024

PATIENT
  Age: 52 Year
  Sex: Male

DRUGS (2)
  1. IRON [Concomitant]
     Active Substance: IRON
     Dosage: UNK (159(45)MG)
  2. XELJANZ [Suspect]
     Active Substance: TOFACITINIB CITRATE
     Indication: COLITIS ULCERATIVE
     Dosage: 10 MG, 2X/DAY (60^S)
     Route: 048
     Dates: start: 20190128

REACTIONS (2)
  - Oropharyngeal pain [Recovered/Resolved]
  - Rhinorrhoea [Recovered/Resolved]
